FAERS Safety Report 24248302 (Version 1)
Quarter: 2024Q3

REPORT INFORMATION
  Report Type: Spontaneous
  Country: US (occurrence: None)
  Receive Date: 20240826
  Receipt Date: 20240826
  Transmission Date: 20241017
  Serious: No
  Sender: ASTRAZENECA
  Company Number: 2024A191398

PATIENT

DRUGS (2)
  1. ESOMEPRAZOLE [Suspect]
     Active Substance: ESOMEPRAZOLE
  2. ESOMEPRAZOLE [Suspect]
     Active Substance: ESOMEPRAZOLE
     Dates: start: 2020

REACTIONS (4)
  - Eosinophilic oesophagitis [Unknown]
  - Cyclic vomiting syndrome [Unknown]
  - Nausea [Unknown]
  - Intentional product use issue [Unknown]
